FAERS Safety Report 7635211-5 (Version None)
Quarter: 2011Q3

REPORT INFORMATION
  Report Type: 
  Country: None (occurrence: None)
  Receive Date: 20110718
  Receipt Date: 20110707
  Transmission Date: 20111222
  Serious: Yes (Hospitalization)
  Sender: FDA-Public Use
  Company Number: JPI-P-013968

PATIENT
  Age: 90 Year
  Sex: Female
  Weight: 53.5244 kg

DRUGS (4)
  1. XYREM [Suspect]
     Indication: CATAPLEXY
     Dosage: SEE IMAGE
     Route: 048
     Dates: start: 20110401
  2. XYREM [Suspect]
     Indication: CATAPLEXY
     Dosage: SEE IMAGE
     Route: 048
     Dates: start: 20080310
  3. UNSPECIFIED HEART MEDICATIONS [Concomitant]
  4. BLOOD PRESSURE MEDICATIONS [Concomitant]

REACTIONS (5)
  - FALL [None]
  - HEAD INJURY [None]
  - APHAGIA [None]
  - ASTHENIA [None]
  - ABASIA [None]
